FAERS Safety Report 15819821 (Version 4)
Quarter: 2019Q1

REPORT INFORMATION
  Report Type: Spontaneous
  Country: US (occurrence: US)
  Receive Date: 20190114
  Receipt Date: 20190205
  Transmission Date: 20190417
  Serious: No
  Sender: FDA-Public Use
  Company Number: US-AMGEN-USASP2019005172

PATIENT
  Sex: Female
  Weight: 68.4 kg

DRUGS (2)
  1. ENBREL [Suspect]
     Active Substance: ETANERCEPT
     Indication: RHEUMATOID ARTHRITIS
     Dosage: UNK
     Route: 065
     Dates: start: 2014, end: 2015
  2. ENBREL [Suspect]
     Active Substance: ETANERCEPT
     Dosage: UNK
     Route: 065
     Dates: end: 2016

REACTIONS (3)
  - Bronchitis [Unknown]
  - Drug effect decreased [Unknown]
  - Herpes zoster [Unknown]

NARRATIVE: CASE EVENT DATE: 2015
